FAERS Safety Report 7801861 (Version 3)
Quarter: 2012Q4

REPORT INFORMATION
  Report Type: 
  Country: US (occurrence: US)
  Receive Date: 20110207
  Receipt Date: 20120917
  Transmission Date: 20130627
  Serious: Yes (Hospitalization)
  Sender: FDA-Public Use
  Company Number: US-ACTELION-A-US2011-44319

PATIENT
  Age: 77 Year
  Sex: Female

DRUGS (2)
  1. TRACLEER [Suspect]
     Indication: PULMONARY ARTERIAL HYPERTENSION
     Dosage: UNK mg, UNK
     Route: 048
     Dates: start: 2009
  2. GLIPIZIDE [Concomitant]

REACTIONS (7)
  - Fall [Unknown]
  - Head injury [Unknown]
  - Angina pectoris [Unknown]
  - Diabetes mellitus inadequate control [Unknown]
  - Blood pressure diastolic decreased [Unknown]
  - Blood glucose fluctuation [Unknown]
  - Insomnia [Unknown]
